FAERS Safety Report 8069017-2 (Version None)
Quarter: 2012Q1

REPORT INFORMATION
  Report Type: 
  Country: None (occurrence: None)
  Receive Date: 20120118
  Receipt Date: 20120103
  Transmission Date: 20120608
  Serious: Yes (Hospitalization, Other)
  Sender: FDA-Public Use
  Company Number: DSA_81767_2006

PATIENT
  Age: 59 Year
  Sex: Female
  Weight: 78.0187 kg

DRUGS (15)
  1. LOVAZA [Concomitant]
  2. MULTIVITAMIN [Concomitant]
  3. FOLIC ACID [Concomitant]
  4. CALCIUM CARBONATE [Concomitant]
  5. IBUPROFEN [Concomitant]
  6. METOPROLOL TARTRATE [Concomitant]
  7. VITAMIN B6 [Concomitant]
  8. XYREM [Suspect]
     Indication: RESTLESS LEGS SYNDROME
     Dosage: 4.5 GM (2.25 GM, 2 IN 1 D), ORAL
     Route: 048
     Dates: start: 20061110, end: 20110715
  9. ROPINIROLE [Concomitant]
  10. CALCITRIOL [Concomitant]
  11. VITAMIN D [Concomitant]
  12. LEVOTHYROXINE SODIUM [Concomitant]
  13. ZYFLAMEND [Concomitant]
  14. METOPROLOL TARTRATE [Concomitant]
  15. SIMVASTATIN [Concomitant]

REACTIONS (10)
  - ASTHENIA [None]
  - ABDOMINAL DISCOMFORT [None]
  - DEVICE FAILURE [None]
  - BUNDLE BRANCH BLOCK [None]
  - NAUSEA [None]
  - HYPERTENSION [None]
  - DIZZINESS [None]
  - TACHYCARDIA [None]
  - FEELING ABNORMAL [None]
  - CARDIAC DISORDER [None]
